FAERS Safety Report 25593766 (Version 3)
Quarter: 2025Q3

REPORT INFORMATION
  Report Type: Report from Study
  Country: EU (occurrence: EU)
  Receive Date: 20250723
  Receipt Date: 20250923
  Transmission Date: 20251021
  Serious: Yes (Hospitalization)
  Sender: ALEXION PHARMACEUTICALS
  Company Number: EU-ASTRAZENECA-202507EEA012497IE

PATIENT
  Age: 24 Year
  Sex: Female

DRUGS (5)
  1. SOLIRIS [Suspect]
     Active Substance: ECULIZUMAB
     Indication: Paroxysmal nocturnal haemoglobinuria
     Dosage: 900 MILLIGRAM, Q2W
     Dates: start: 20210210
  2. SOLIRIS [Suspect]
     Active Substance: ECULIZUMAB
     Indication: Pulmonary embolism
  3. WARFARIN [Concomitant]
     Active Substance: WARFARIN
     Dosage: 10 MILLIGRAM, QD
     Route: 050
     Dates: end: 20250723
  4. CIPROFLOXACIN [Concomitant]
     Active Substance: CIPROFLOXACIN
     Dosage: 330 MILLIGRAM, QD
     Route: 050
  5. ELIQUIS [Concomitant]
     Active Substance: APIXABAN
     Dosage: 2.5 MILLIGRAM, BID
     Route: 050

REACTIONS (3)
  - Orthostatic hypotension [Recovered/Resolved]
  - Haemoglobin decreased [Recovered/Resolved]
  - Platelet count decreased [Recovering/Resolving]

NARRATIVE: CASE EVENT DATE: 20250714
